FAERS Safety Report 8299203-8 (Version None)
Quarter: 2012Q2

REPORT INFORMATION
  Report Type: 
  Country: None (occurrence: None)
  Receive Date: 20120418
  Receipt Date: 20120418
  Transmission Date: 20120825
  Serious: No
  Sender: FDA-Public Use
  Company Number: None

PATIENT
  Age: 47 Year
  Sex: Female
  Weight: 90.7194 kg

DRUGS (1)
  1. RISPERIDONE [Suspect]
     Indication: DEPRESSION
     Dosage: 2 MG DAILY ORAL
     Route: 048
     Dates: start: 20070101, end: 20100101

REACTIONS (3)
  - PARKINSONISM [None]
  - DYSTONIA [None]
  - MYOCLONUS [None]
